FAERS Safety Report 4911776-9 (Version None)
Quarter: 2006Q1

REPORT INFORMATION
  Report Type: 
  Country: None (occurrence: None)
  Receive Date: 20060213
  Receipt Date: 20060213
  Transmission Date: 20060701
  Serious: Yes (Other)
  Sender: FDA-Public Use
  Company Number: None

PATIENT
  Age: 31 Year
  Sex: Female
  Weight: 44.4525 kg

DRUGS (1)
  1. LAMICTAL [Suspect]
     Indication: MEDICATION ERROR
     Dosage: 25 MG/DAY   ONCE AT NIGHTTIME  PO
     Route: 048
     Dates: start: 20060125, end: 20060201

REACTIONS (2)
  - EOSINOPHILIA [None]
  - LYMPHADENOPATHY [None]
